FAERS Safety Report 5599406-7 (Version None)
Quarter: 2008Q1

REPORT INFORMATION
  Report Type: 
  Country: None (occurrence: None)
  Receive Date: 20080122
  Receipt Date: 20080110
  Transmission Date: 20080703
  Serious: Yes (Other)
  Sender: FDA-Public Use
  Company Number: US-PFIZER INC-2007099341

PATIENT
  Sex: Female
  Weight: 78.5 kg

DRUGS (7)
  1. LYRICA [Suspect]
     Indication: FIBROMYALGIA
     Route: 048
     Dates: start: 20071114, end: 20071125
  2. ALL OTHER THERAPEUTIC PRODUCTS [Concomitant]
  3. ZOLOFT [Concomitant]
  4. NAPROXEN [Concomitant]
  5. XANAX [Concomitant]
  6. AMITRIPTYLINE HCL [Concomitant]
  7. LORTAB [Concomitant]

REACTIONS (5)
  - ACTIVITIES OF DAILY LIVING IMPAIRED [None]
  - GENERALISED OEDEMA [None]
  - JOINT STIFFNESS [None]
  - JOINT SWELLING [None]
  - OEDEMA PERIPHERAL [None]
